FAERS Safety Report 18489583 (Version 1)
Quarter: 2020Q4

REPORT INFORMATION
  Report Type: Other
  Country: US (occurrence: US)
  Receive Date: 20201111
  Receipt Date: 20201111
  Transmission Date: 20210114
  Serious: Yes (Other)
  Sender: FDA-Public Use
  Company Number: US-ROCHE-2708973

PATIENT
  Age: 56 Year
  Sex: Male

DRUGS (11)
  1. BEVACIZUMAB. [Suspect]
     Active Substance: BEVACIZUMAB
     Indication: DIABETIC RETINOPATHY
     Dosage: 1.25MG OU JAN/2019 (2.5MG)
     Route: 050
     Dates: start: 201901, end: 201901
  2. BEVACIZUMAB. [Suspect]
     Active Substance: BEVACIZUMAB
     Dosage: 1.25MG OU MAY/2019 (2.5MG)
     Route: 050
     Dates: start: 201905, end: 201905
  3. PANTOPRAZOLE [Concomitant]
     Active Substance: PANTOPRAZOLE
  4. BEVACIZUMAB. [Suspect]
     Active Substance: BEVACIZUMAB
     Dosage: 1.25MGOU JUL/2019 (2.5MG),
     Route: 050
     Dates: start: 201907, end: 201907
  5. BEVACIZUMAB. [Suspect]
     Active Substance: BEVACIZUMAB
     Dosage: 1.25MG OU SEP/2019 (2.5MG),
     Route: 050
     Dates: start: 201909, end: 201909
  6. BEVACIZUMAB. [Suspect]
     Active Substance: BEVACIZUMAB
     Dosage: 1.25MG OU SEP/2019 (2.5MG),
     Route: 050
     Dates: start: 201909, end: 201909
  7. BEVACIZUMAB. [Suspect]
     Active Substance: BEVACIZUMAB
     Dosage: 1.25MG OU OCT/2019 (2.5MG),
     Route: 050
     Dates: start: 201910, end: 201910
  8. BEVACIZUMAB. [Suspect]
     Active Substance: BEVACIZUMAB
     Dosage: 1.25MG OU AUG/2019 (2.5MG),
     Route: 050
     Dates: start: 201908, end: 201908
  9. RANITIDINE. [Concomitant]
     Active Substance: RANITIDINE
  10. BEVACIZUMAB. [Suspect]
     Active Substance: BEVACIZUMAB
     Dosage: 1.25MG OU NOV/2019 (2.5 MG)
     Route: 050
     Dates: start: 201911, end: 201911
  11. BEVACIZUMAB. [Suspect]
     Active Substance: BEVACIZUMAB
     Indication: MACULAR OEDEMA
     Dosage: 1.25MG OU MAR/2019 (2.5MG),
     Route: 050
     Dates: start: 201903, end: 201903

REACTIONS (4)
  - Off label use [Unknown]
  - Intentional product use issue [Unknown]
  - Thrombotic microangiopathy [Unknown]
  - Acute kidney injury [Unknown]
